FAERS Safety Report 6165333-X (Version None)
Quarter: 2009Q2

REPORT INFORMATION
  Report Type: 
  Country: None (occurrence: None)
  Receive Date: 20090423
  Receipt Date: 20090415
  Transmission Date: 20091009
  Serious: Yes (Other)
  Sender: FDA-Public Use
  Company Number: US-BAXTER-2009BH003828

PATIENT
  Age: 62 Year
  Sex: Male

DRUGS (4)
  1. HEPARIN [Suspect]
     Indication: DRUG USE FOR UNKNOWN INDICATION
     Route: 040
     Dates: start: 20090201
  2. HEPARIN [Suspect]
     Route: 041
     Dates: start: 20090201
  3. INTEGRILIN [Suspect]
     Indication: DRUG USE FOR UNKNOWN INDICATION
     Route: 040
     Dates: start: 20090201
  4. INTEGRILIN [Suspect]
     Route: 041
     Dates: start: 20090201

REACTIONS (1)
  - PULMONARY ALVEOLAR HAEMORRHAGE [None]
